FAERS Safety Report 9223639 (Version 2)
Quarter: 2013Q2

REPORT INFORMATION
  Report Type: Spontaneous
  Country: US (occurrence: US)
  Receive Date: 20130410
  Receipt Date: 20130612
  Transmission Date: 20140414
  Serious: Yes (Death)
  Sender: FDA-Public Use
  Company Number: US-ELI_LILLY_AND_COMPANY-US201106007097

PATIENT
  Age: 63 Year
  Sex: Female
  Weight: 55.78 kg

DRUGS (4)
  1. FORTEO [Suspect]
     Indication: OSTEOPOROSIS
     Dosage: 20 UG, QD
     Dates: start: 201104
  2. FORTEO [Suspect]
     Dosage: 20 UG, QD
  3. FORTEO [Suspect]
     Dosage: 20 UG, QD
  4. FORTEO [Suspect]
     Dosage: 20 UG, QD

REACTIONS (7)
  - Death [Fatal]
  - Sternal fracture [Recovering/Resolving]
  - Malaise [Unknown]
  - Decreased activity [Unknown]
  - Fall [Recovered/Resolved]
  - Arthralgia [Unknown]
  - Injection site bruising [Unknown]
